FAERS Safety Report 5401775-5 (Version None)
Quarter: 2007Q3

REPORT INFORMATION
  Report Type: 
  Country: None (occurrence: None)
  Receive Date: 20070731
  Receipt Date: 20070725
  Transmission Date: 20080115
  Serious: Yes (Other)
  Sender: FDA-Public Use
  Company Number: US-PFIZER INC-2007061721

PATIENT
  Sex: Male
  Weight: 104.54 kg

DRUGS (11)
  1. VIAGRA [Suspect]
     Indication: ERECTILE DYSFUNCTION
     Route: 065
  2. KLONOPIN [Concomitant]
  3. BETAPACE [Concomitant]
  4. ANDROID [Concomitant]
  5. HYTRIN [Concomitant]
  6. ZOCOR [Concomitant]
  7. FAMOTIDINE [Concomitant]
  8. SINGULAIR [Concomitant]
  9. SYNTHROID [Concomitant]
  10. ALBUTEROL [Concomitant]
  11. COUMADIN [Concomitant]

REACTIONS (1)
  - CARDIAC OPERATION [None]
